FAERS Safety Report 8959703 (Version 1)
Quarter: 2012Q4

REPORT INFORMATION
  Report Type: Report from Study
  Country: AU (occurrence: AU)
  Receive Date: 20121212
  Receipt Date: 20121212
  Transmission Date: 20130627
  Serious: Yes (Disabling)
  Sender: FDA-Public Use
  Company Number: AU-SANOFI-AVENTIS-2012SA089631

PATIENT
  Age: 51 Year
  Sex: Male

DRUGS (5)
  1. OXALIPLATIN [Suspect]
     Indication: COLON CANCER
     Dosage: frequency- 1 in 2 weeks
     Route: 042
     Dates: start: 20050512, end: 20051004
  2. OXALIPLATIN [Suspect]
     Indication: COLON CANCER
     Route: 042
     Dates: start: 20051017, end: 20051017
  3. CALCIUM FOLINATE [Suspect]
     Indication: COLON CANCER
     Dosage: frequency- 1 in 2 week
     Route: 042
     Dates: start: 20050512, end: 20051004
  4. FLUOROURACIL [Suspect]
     Indication: COLON CANCER
     Dosage: frequency- 1 in 2 week
     Route: 040
     Dates: start: 20050512, end: 20051004
  5. FLUOROURACIL [Suspect]
     Indication: COLON CANCER
     Dosage: route- intravenous infusion
frequency- 1 in 2 week
     Dates: start: 20050512, end: 20051004

REACTIONS (2)
  - Erectile dysfunction [Not Recovered/Not Resolved]
  - Neuropathy peripheral [Not Recovered/Not Resolved]
